FAERS Safety Report 12944529 (Version 1)
Quarter: 2016Q4

REPORT INFORMATION
  Report Type: Spontaneous
  Country: MX (occurrence: MX)
  Receive Date: 20161115
  Receipt Date: 20161115
  Transmission Date: 20170207
  Serious: Yes (Hospitalization, Other)
  Sender: FDA-Public Use
  Company Number: MX-SA-2016SA204904

PATIENT
  Age: 0 Day
  Sex: Male

DRUGS (1)
  1. CLEXANE [Suspect]
     Active Substance: ENOXAPARIN SODIUM
     Route: 064
     Dates: start: 20150822, end: 20160410

REACTIONS (2)
  - Foetal exposure during pregnancy [Unknown]
  - Intestinal malrotation [Recovered/Resolved]

NARRATIVE: CASE EVENT DATE: 201604
